FAERS Safety Report 8418690-5 (Version None)
Quarter: 2012Q2

REPORT INFORMATION
  Report Type: 
  Country: None (occurrence: None)
  Receive Date: 20120607
  Receipt Date: 20120530
  Transmission Date: 20120825
  Serious: Yes (Hospitalization)
  Sender: FDA-Public Use
  Company Number: US-BAYER-2011-070805

PATIENT
  Age: 32 Year
  Sex: Female
  Weight: 77 kg

DRUGS (4)
  1. CLARITIN [Concomitant]
  2. YAZ [Suspect]
     Indication: CONTRACEPTION
     Dosage: UNK
     Dates: start: 20070901, end: 20090901
  3. VITAMIN B-12 [Concomitant]
  4. IBUPROFEN [Concomitant]
     Indication: MIGRAINE
     Dosage: 4 TABLETS, PRN
     Route: 048

REACTIONS (12)
  - DYSPNOEA [None]
  - ANXIETY [None]
  - ANHEDONIA [None]
  - CHEST PAIN [None]
  - DIZZINESS [None]
  - HEAD INJURY [None]
  - INJURY [None]
  - LOSS OF CONSCIOUSNESS [None]
  - FALL [None]
  - PULMONARY EMBOLISM [None]
  - PYREXIA [None]
  - DEEP VEIN THROMBOSIS [None]
